FAERS Safety Report 6648058-3 (Version None)
Quarter: 2010Q1

REPORT INFORMATION
  Report Type: 
  Country: None (occurrence: None)
  Receive Date: 20100324
  Receipt Date: 20100316
  Transmission Date: 20100710
  Serious: Yes (Hospitalization, Other)
  Sender: FDA-Public Use
  Company Number: PHHO2010IT03447

PATIENT
  Sex: Female
  Weight: 56 kg

DRUGS (6)
  1. CERTICAN [Suspect]
     Indication: RENAL TRANSPLANT
     Dosage: 0.75 MG
     Route: 048
     Dates: start: 20100107, end: 20100109
  2. CERTICAN [Suspect]
     Dosage: NO TREATMENT
     Dates: start: 20100110, end: 20100117
  3. CERTICAN [Suspect]
     Dosage: 0.75 MG
     Route: 048
     Dates: start: 20100118, end: 20100303
  4. NEORAL [Suspect]
     Indication: RENAL TRANSPLANT
     Dosage: 110 MG
     Dates: start: 20100107, end: 20100109
  5. NEORAL [Suspect]
     Dosage: NO TREATMENT
     Dates: start: 20100110, end: 20100117
  6. NEORAL [Suspect]
     Dosage: 110 MG
     Route: 048
     Dates: start: 20100118

REACTIONS (3)
  - KIDNEY ANASTOMOSIS [None]
  - RENAL TUBULAR NECROSIS [None]
  - URINARY FISTULA [None]
